FAERS Safety Report 24581036 (Version 1)
Quarter: 2024Q4

REPORT INFORMATION
  Report Type: Spontaneous
  Country: US (occurrence: None)
  Receive Date: 20241104
  Receipt Date: 20241104
  Transmission Date: 20250114
  Serious: Yes (unspecified)
  Sender: Public
  Company Number: None

PATIENT
  Age: 70 Year
  Sex: Female
  Weight: 64 kg

DRUGS (2)
  1. CARBOPLATIN [Suspect]
     Active Substance: CARBOPLATIN
     Dosage: OTHER FREQUENCY : DAY 1 EVERY CYCLE;?OTHER ROUTE : INTRAVENOUS DRIP;?
     Route: 050
  2. GEMCITABINE [Concomitant]
     Active Substance: GEMCITABINE

REACTIONS (12)
  - Infusion related reaction [None]
  - Pruritus [None]
  - Pruritus genital [None]
  - Muscle tightness [None]
  - Feeling hot [None]
  - Flushing [None]
  - Rash [None]
  - Rash [None]
  - Rash [None]
  - Rash [None]
  - Peripheral swelling [None]
  - Therapy interrupted [None]

NARRATIVE: CASE EVENT DATE: 20241030
